FAERS Safety Report 7393389 (Version 7)
Quarter: 2013Q4

REPORT INFORMATION
  Report Type: Spontaneous
  Country: US (occurrence: US)
  Receive Date: 20100519
  Receipt Date: 20131001
  Transmission Date: 20140711
  Serious: Yes (Hospitalization)
  Sender: FDA-Public Use
  Company Number: US-JNJFOC-20100505753

PATIENT
  Age: 6 Year
  Sex: Male

DRUGS (4)
  1. CHILDREN^S MOTRIN BUBBLEGUM ORAL [Suspect]
     Indication: PYREXIA
     Route: 048
     Dates: start: 20100412, end: 20100423
  2. CHILDREN^S MOTRIN BUBBLEGUM ORAL [Suspect]
     Indication: GASTROENTERITIS VIRAL
     Route: 048
     Dates: start: 20100412, end: 20100423
  3. CHILDREN^S TYLENOL LIQUID BUBBLEGUM [Suspect]
     Indication: PYREXIA
     Dosage: AS DIRECTED, EVERY 4 HOURS
     Route: 048
     Dates: start: 20100412, end: 20100423
  4. CHILDREN^S TYLENOL LIQUID BUBBLEGUM [Suspect]
     Indication: GASTROENTERITIS VIRAL
     Dosage: AS DIRECTED, EVERY 4 HOURS
     Route: 048
     Dates: start: 20100412, end: 20100423

REACTIONS (4)
  - Bacterial infection [Unknown]
  - Product quality issue [Unknown]
  - Local swelling [Not Recovered/Not Resolved]
  - Condition aggravated [Not Recovered/Not Resolved]
